FAERS Safety Report 25442613 (Version 2)
Quarter: 2025Q2

REPORT INFORMATION
  Report Type: Spontaneous
  Country: DE (occurrence: DE)
  Receive Date: 20250617
  Receipt Date: 20250619
  Transmission Date: 20250717
  Serious: Yes (Hospitalization, Other)
  Sender: Haleon PLC
  Company Number: DE-SANDOZ-SDZ2025DE040564

PATIENT
  Sex: Male

DRUGS (11)
  1. DICLOFENAC [Suspect]
     Active Substance: DICLOFENAC
     Indication: Product used for unknown indication
     Dates: start: 20190704, end: 20191008
  2. IBUPROFEN [Suspect]
     Active Substance: IBUPROFEN
     Indication: Product used for unknown indication
     Dates: start: 20201006, end: 20230402
  3. IBUPROFEN [Suspect]
     Active Substance: IBUPROFEN
     Dates: start: 20191008, end: 20201006
  4. SIMPONI [Suspect]
     Active Substance: GOLIMUMAB
     Indication: Product used for unknown indication
     Dates: start: 20231010
  5. SIMPONI [Suspect]
     Active Substance: GOLIMUMAB
     Dates: start: 20190704, end: 20230402
  6. SIMPONI [Suspect]
     Active Substance: GOLIMUMAB
     Dates: start: 20231017, end: 20231129
  7. SIMPONI [Suspect]
     Active Substance: GOLIMUMAB
     Dates: start: 20231220
  8. COSENTYX [Suspect]
     Active Substance: SECUKINUMAB
     Indication: Product used for unknown indication
     Dates: start: 20230403, end: 20230919
  9. COSENTYX [Suspect]
     Active Substance: SECUKINUMAB
     Dates: start: 20190325, end: 20190612
  10. METHOTREXATE [Suspect]
     Active Substance: METHOTREXATE
     Indication: Product used for unknown indication
     Dates: start: 20070613, end: 20220725
  11. ETORICOXIB [Suspect]
     Active Substance: ETORICOXIB
     Indication: Product used for unknown indication
     Dates: start: 20230403

REACTIONS (5)
  - Hydronephrosis [Unknown]
  - Kidney infection [Unknown]
  - Acute kidney injury [Unknown]
  - Ureterolithiasis [Unknown]
  - Urinary tract disorder [Unknown]

NARRATIVE: CASE EVENT DATE: 20231129
